FAERS Safety Report 23466421 (Version 4)
Quarter: 2024Q1

REPORT INFORMATION
  Report Type: Spontaneous
  Country: TR (occurrence: TR)
  Receive Date: 20240201
  Receipt Date: 20240216
  Transmission Date: 20240410
  Serious: Yes (Hospitalization, Other)
  Sender: FDA-Public Use
  Company Number: TR-009507513-2401TUR015602

PATIENT
  Age: 18 Year
  Sex: Female

DRUGS (6)
  1. PEMBROLIZUMAB [Suspect]
     Active Substance: PEMBROLIZUMAB
     Indication: Non-small cell lung cancer metastatic
     Dosage: CYCLICAL
     Dates: start: 2022, end: 202306
  2. PEMBROLIZUMAB [Suspect]
     Active Substance: PEMBROLIZUMAB
     Dosage: UNK
     Dates: start: 20231110
  3. CISPLATIN [Suspect]
     Active Substance: CISPLATIN
     Indication: Non-small cell lung cancer metastatic
     Dosage: CYCLICAL, TOTAL 4 CYCLES
     Dates: start: 2022
  4. PEMETREXED [Suspect]
     Active Substance: PEMETREXED
     Indication: Non-small cell lung cancer metastatic
     Dosage: CYCLICAL
     Dates: start: 2022, end: 202306
  5. GEMCITABINE [Suspect]
     Active Substance: GEMCITABINE
     Indication: Non-small cell lung cancer metastatic
     Dosage: UNK
     Dates: start: 20231110
  6. CARBOPLATIN [Suspect]
     Active Substance: CARBOPLATIN
     Indication: Non-small cell lung cancer metastatic
     Dosage: UNK
     Dates: start: 20231110

REACTIONS (18)
  - Febrile neutropenia [Recovering/Resolving]
  - Lung lobectomy [Recovered/Resolved]
  - Mediastinal lymphadenectomy [Recovered/Resolved]
  - Hepatotoxicity [Unknown]
  - Central nervous system immune reconstitution inflammatory response [Unknown]
  - Bradycardia [Recovering/Resolving]
  - Acute haemorrhagic leukoencephalitis [Unknown]
  - Malignant neoplasm progression [Unknown]
  - Spinal cord oedema [Unknown]
  - Paraplegia [Recovering/Resolving]
  - Blindness [Not Recovered/Not Resolved]
  - Radiotherapy [Unknown]
  - Optic neuritis [Unknown]
  - Acute disseminated encephalomyelitis [Unknown]
  - Optic nerve disorder [Not Recovered/Not Resolved]
  - Imaging procedure abnormal [Unknown]
  - Confusional state [Unknown]
  - Oedema peripheral [Unknown]

NARRATIVE: CASE EVENT DATE: 20221122
